FAERS Safety Report 24868008 (Version 2)
Quarter: 2025Q3

REPORT INFORMATION
  Report Type: Spontaneous
  Country: JP (occurrence: JP)
  Receive Date: 20250121
  Receipt Date: 20250730
  Transmission Date: 20251020
  Serious: Yes (Hospitalization, Other)
  Sender: ALEXION PHARMACEUTICALS
  Company Number: JP-ASTRAZENECA-250004954_013120_P_1

PATIENT
  Age: 76 Year
  Sex: Male

DRUGS (4)
  1. DURVALUMAB [Suspect]
     Active Substance: DURVALUMAB
     Indication: Small cell lung cancer
     Dosage: 1500 MILLIGRAM, Q3W
     Dates: start: 20210223, end: 20210514
  2. DURVALUMAB [Suspect]
     Active Substance: DURVALUMAB
     Dosage: 1500 MILLIGRAM, Q4W
     Dates: start: 20210604, end: 20230707
  3. CARBOPLATIN [Concomitant]
     Active Substance: CARBOPLATIN
     Indication: Small cell lung cancer
     Route: 065
     Dates: start: 20210223, end: 20231205
  4. ETOPOSIDE [Concomitant]
     Active Substance: ETOPOSIDE
     Indication: Small cell lung cancer
     Route: 065
     Dates: start: 20210223, end: 20230205

REACTIONS (4)
  - Small cell lung cancer recurrent [Unknown]
  - Malignant neoplasm progression [Unknown]
  - Interstitial lung disease [Recovering/Resolving]
  - Metastases to central nervous system [Unknown]

NARRATIVE: CASE EVENT DATE: 20230905
